FAERS Safety Report 21480398 (Version 1)
Quarter: 2022Q4

REPORT INFORMATION
  Report Type: Report from Study
  Country: US (occurrence: US)
  Receive Date: 20221019
  Receipt Date: 20221019
  Transmission Date: 20230113
  Serious: Yes (Hospitalization, Other)
  Sender: FDA-Public Use
  Company Number: US-NOVARTISTESTPH-NVSC2022US234883

PATIENT
  Sex: Male
  Weight: 95.25 kg

DRUGS (2)
  1. ENTRESTO [Suspect]
     Active Substance: SACUBITRIL\VALSARTAN
     Indication: Cardiac failure
     Dosage: 1 DOSAGE FORM, BID
     Route: 048
     Dates: start: 2020
  2. ENTRESTO [Suspect]
     Active Substance: SACUBITRIL\VALSARTAN
     Dosage: 1.5 DOSAGE FORM, TID (THREE TIMES A DAY; ONE AND A HALF MORNING AND NIGHT)
     Route: 048

REACTIONS (5)
  - Hypotension [Recovering/Resolving]
  - Cardiac disorder [Unknown]
  - Asthenia [Unknown]
  - Wrong technique in product usage process [Not Recovered/Not Resolved]
  - Inappropriate schedule of product administration [Unknown]

NARRATIVE: CASE EVENT DATE: 20200101
